FAERS Safety Report 16386612 (Version 1)
Quarter: 2019Q2

REPORT INFORMATION
  Report Type: Spontaneous
  Country: US (occurrence: US)
  Receive Date: 20190604
  Receipt Date: 20190604
  Transmission Date: 20190711
  Serious: Yes (Other)
  Sender: FDA-Public Use
  Company Number: US-JNJFOC-20190529634

PATIENT
  Age: 46 Year
  Sex: Female

DRUGS (3)
  1. ACETAMINOPHEN. [Suspect]
     Active Substance: ACETAMINOPHEN
     Route: 065
  2. ACETAMINOPHEN. [Suspect]
     Active Substance: ACETAMINOPHEN
     Indication: ABDOMINAL PAIN
     Dosage: 1300 MG OF ACETAMINOPHEN EVERY 4 HOURS
     Route: 065
  3. ACETAMINOPHEN PM [Suspect]
     Active Substance: ACETAMINOPHEN\DIPHENHYDRAMINE HYDROCHLORIDE
     Indication: ABDOMINAL PAIN
     Route: 065

REACTIONS (4)
  - Pancreatitis acute [Recovering/Resolving]
  - Product administration error [Unknown]
  - Overdose [Unknown]
  - Hepatotoxicity [Unknown]
